FAERS Safety Report 8074494-7 (Version None)
Quarter: 2012Q1

REPORT INFORMATION
  Report Type: 
  Country: None (occurrence: None)
  Receive Date: 20120126
  Receipt Date: 20120119
  Transmission Date: 20120608
  Serious: Yes (Hospitalization)
  Sender: FDA-Public Use
  Company Number: FR-PFIZER INC-K201100538

PATIENT
  Age: 81 Year
  Sex: Male

DRUGS (11)
  1. PLAVIX [Concomitant]
     Dosage: UNK
  2. RAMIPRIL [Suspect]
     Dosage: UNK
     Route: 048
  3. NEXIUM [Suspect]
     Dosage: 20 MG, 1X/DAY
     Route: 048
  4. CASODEX [Suspect]
     Dosage: 80 MG, 1X/DAY
     Route: 048
  5. EZETIMIBE [Concomitant]
     Dosage: UNK
  6. PRAVIGARD PAC (COPACKAGED) [Concomitant]
     Dosage: UNK
  7. TAMSULOSIN HCL [Suspect]
     Dosage: UNK
  8. ACETAMINOPHEN [Concomitant]
     Dosage: UNK
  9. LANTUS [Concomitant]
     Dosage: UNK
  10. ACEBUTOLOL [Suspect]
     Dosage: UNK
  11. NORDAZ [Suspect]
     Dosage: UNK

REACTIONS (5)
  - HEAD INJURY [None]
  - FALL [None]
  - HYPOTENSION [None]
  - LOSS OF CONSCIOUSNESS [None]
  - MALAISE [None]
